FAERS Safety Report 6361692-3 (Version None)
Quarter: 2009Q3

REPORT INFORMATION
  Report Type: 
  Country: None (occurrence: None)
  Receive Date: 20090918
  Receipt Date: 20090914
  Transmission Date: 20100115
  Serious: Yes (Hospitalization, Disabling)
  Sender: FDA-Public Use
  Company Number: US-GENENTECH-289622

PATIENT
  Sex: Female
  Weight: 59.41 kg

DRUGS (2)
  1. AVASTIN [Suspect]
     Indication: BREAST CANCER
     Dosage: 580 MG, Q2W
     Route: 042
     Dates: start: 20070823, end: 20090601
  2. RADIOTHERAPY [Concomitant]
     Indication: BREAST CANCER

REACTIONS (1)
  - MYELITIS TRANSVERSE [None]
